FAERS Safety Report 9649830 (Version 2)
Quarter: 2013Q4

REPORT INFORMATION
  Report Type: Spontaneous
  Country: US (occurrence: US)
  Receive Date: 20131028
  Receipt Date: 20131028
  Transmission Date: 20140711
  Serious: Yes (Death, Other)
  Sender: FDA-Public Use
  Company Number: US-NAPPMUNDI-USA-2012-0094065

PATIENT
  Age: 40 Year
  Sex: Male
  Weight: 93.42 kg

DRUGS (20)
  1. OXYCODONE HCL CR TABLETS (SIMILAR TO NDA 20-553) [Suspect]
     Indication: PAIN
  2. METHADONE [Suspect]
     Indication: PRODUCT USED FOR UNKNOWN INDICATION
  3. PROMETHAZINE [Suspect]
     Indication: PRODUCT USED FOR UNKNOWN INDICATION
  4. CYMBALTA [Suspect]
     Indication: PRODUCT USED FOR UNKNOWN INDICATION
  5. LORAZEPAM [Suspect]
     Indication: PRODUCT USED FOR UNKNOWN INDICATION
  6. ETHANOL [Suspect]
     Indication: PRODUCT USED FOR UNKNOWN INDICATION
  7. AMPHETAMINE [Suspect]
     Indication: PRODUCT USED FOR UNKNOWN INDICATION
  8. MS CONTIN TABLETS [Concomitant]
  9. AMBIEN [Concomitant]
  10. NEURONTIN [Concomitant]
  11. HYDROCODONE [Concomitant]
  12. LIDODERM [Concomitant]
  13. PERCOCET                           /00446701/ [Concomitant]
  14. MIRALAX                            /00754501/ [Concomitant]
  15. ZOFRAN                             /00955301/ [Concomitant]
  16. LISINOPRIL [Concomitant]
  17. CLONAZEPAM [Concomitant]
  18. OMPRAZOLE [Concomitant]
  19. ENDOCET [Concomitant]
  20. MORPHINE SULFATE (SIMILAR TO NDA 19-516) [Concomitant]

REACTIONS (3)
  - Accidental overdose [Fatal]
  - Drug abuse [Unknown]
  - Fatigue [Unknown]
